FAERS Safety Report 6614347-1 (Version None)
Quarter: 2010Q1

REPORT INFORMATION
  Report Type: 
  Country: None (occurrence: None)
  Receive Date: 20100303
  Receipt Date: 20100303
  Transmission Date: 20100710
  Serious: Yes (Hospitalization)
  Sender: FDA-Public Use
  Company Number: None

PATIENT
  Age: 66 Year
  Sex: Male
  Weight: 85.6 kg

DRUGS (1)
  1. CEFAZOLIN [Suspect]
     Indication: INFECTION PROPHYLAXIS
     Dosage: 2 GM ONCE IV
     Route: 042
     Dates: start: 20100201, end: 20100201

REACTIONS (4)
  - ANAPHYLACTOID REACTION [None]
  - RESPIRATORY DEPRESSION [None]
  - TACHYPNOEA [None]
  - WHEEZING [None]
